FAERS Safety Report 6096895-9 (Version None)
Quarter: 2009Q1

REPORT INFORMATION
  Report Type: 
  Country: None (occurrence: None)
  Receive Date: 20090223
  Receipt Date: 20080328
  Transmission Date: 20090719
  Serious: Yes (Other)
  Sender: FDA-Public Use
  Company Number: WAES 0803USA05068

PATIENT

DRUGS (1)
  1. ZOCOR [Suspect]
     Dosage: 80 MG/DAILY/PO
     Route: 048

REACTIONS (1)
  - HEPATIC FAILURE [None]
